FAERS Safety Report 19779490 (Version 2)
Quarter: 2022Q2

REPORT INFORMATION
  Report Type: Spontaneous
  Country: US (occurrence: US)
  Receive Date: 20210902
  Receipt Date: 20220503
  Transmission Date: 20220721
  Serious: No
  Sender: FDA-Public Use
  Company Number: US-PFIZER INC-2016582408

PATIENT
  Age: 62 Year
  Sex: Female

DRUGS (10)
  1. LYRICA [Suspect]
     Active Substance: PREGABALIN
     Indication: Fibromyalgia
     Dosage: 75 MG, 3X/DAY [ONE BY MOUTH THREE TIMES A DAY]
     Route: 048
  2. CELEBREX [Concomitant]
     Active Substance: CELECOXIB
     Dosage: 200 MG, DAILY
     Route: 048
  3. ALEVE [Concomitant]
     Active Substance: NAPROXEN SODIUM
     Dosage: 220 MG, 2X/DAY [2 BY MOUTH TWICE A DAY]
     Route: 048
  4. CEFIXIME [Concomitant]
     Active Substance: CEFIXIME
     Dosage: UNK UNK, 1X/DAY [1-2 AT  BEDTIME (1-2 AT  BEDTIME )]
  5. MS CONTIN [Concomitant]
     Active Substance: MORPHINE SULFATE
     Dosage: 15 MG, 2X/DAY [1 BY MOUTH TWICE A DAY]
     Route: 048
  6. MEDROL [Concomitant]
     Active Substance: METHYLPREDNISOLONE
     Dosage: 24 MG, 2X/DAY [TAKE 6 TABLETSX2 DAYS THEN TAPER AS DIRECTED]
  7. NEURONTIN [Concomitant]
     Active Substance: GABAPENTIN
     Dosage: UNK ([INCREASE TO 2 TWICE A DAY AND 3 AT BEDTIME])
  8. DOCONEXENT\ICOSAPENT\TOCOPHEROL [Concomitant]
     Active Substance: DOCONEXENT\ICOSAPENT\TOCOPHEROL
     Dosage: 1000 MG, DAILY
     Route: 048
  9. OXYCODONE HYDROCHLORIDE [Concomitant]
     Active Substance: OXYCODONE HYDROCHLORIDE
     Indication: Pain
     Dosage: 10 MG, AS NEEDED [ONE BY MOUTH FOUR TIMES A DAY AS NEEDED FOR PAIN]
     Route: 048
  10. VOLTAREN [Concomitant]
     Active Substance: DICLOFENAC SODIUM
     Indication: Arthropathy
     Dosage: 4 G, AS NEEDED [APPLY 4 GR FOUR TIMES A DAY AS NEEDED TO AFFECTED JOINT]

REACTIONS (3)
  - Headache [Unknown]
  - Malaise [Unknown]
  - Pain [Unknown]
